FAERS Safety Report 22287430 (Version 1)
Quarter: 2023Q2

REPORT INFORMATION
  Report Type: Spontaneous
  Country: ES (occurrence: ES)
  Receive Date: 20230505
  Receipt Date: 20230505
  Transmission Date: 20230722
  Serious: Yes (Death, Hospitalization, Other)
  Sender: FDA-Public Use
  Company Number: ES-AEMPS-1358237

PATIENT
  Age: 83 Year
  Sex: Female
  Weight: 55.4 kg

DRUGS (5)
  1. LINEZOLID [Suspect]
     Active Substance: LINEZOLID
     Indication: Urinary tract infection
     Dosage: 600 MILLIGRAM
     Route: 042
     Dates: start: 20230208, end: 20230220
  2. BISOPROLOL [Concomitant]
     Active Substance: BISOPROLOL
     Indication: Cardiac failure congestive
     Dosage: 2.5 MILLIGRAM, ONCE A DAY,1-0-0
     Route: 048
     Dates: start: 20201202
  3. DIGOXIN [Concomitant]
     Active Substance: DIGOXIN
     Indication: Atrial fibrillation
     Dosage: 0.25 MILLIGRAM, ONCE A DAY, 1-0-0
     Route: 048
     Dates: start: 20230123
  4. FUROSEMIDE [Concomitant]
     Active Substance: FUROSEMIDE
     Indication: Cardiac failure congestive
     Dosage: 40 MILLIGRAM,1-0-1
     Route: 048
     Dates: start: 20201202
  5. ENOXAPARIN [Concomitant]
     Active Substance: ENOXAPARIN
     Indication: Atrial fibrillation
     Dosage: 40 MILLIGRAM, ONCE A DAY, 40MG/24H
     Route: 058
     Dates: start: 20230206

REACTIONS (2)
  - Pancytopenia [Fatal]
  - Agranulocytosis [Fatal]

NARRATIVE: CASE EVENT DATE: 20230216
